FAERS Safety Report 5264294-5 (Version None)
Quarter: 2007Q1

REPORT INFORMATION
  Report Type: 
  Country: None (occurrence: None)
  Receive Date: 20061213
  Receipt Date: 20050427
  Transmission Date: 20070707
  Serious: Yes (Other)
  Sender: FDA-Public Use
  Company Number: 2005UW06583

PATIENT
  Age: 67 Year
  Sex: Male
  Weight: 79.378 kg

DRUGS (8)
  1. IRESSA [Suspect]
     Indication: NEOPLASM MALIGNANT
     Dosage: 250 MG PO
     Route: 048
     Dates: start: 20041101
  2. ENALAPRIL MALEATE [Concomitant]
  3. INDAPAMIDE [Concomitant]
  4. HYZAAR [Concomitant]
  5. ASPIRIN [Concomitant]
  6. TRAZODONE HCL [Concomitant]
  7. LIPITOR [Concomitant]
  8. VIAGRA [Concomitant]

REACTIONS (3)
  - DYSPEPSIA [None]
  - ERUCTATION [None]
  - STOMACH DISCOMFORT [None]
